FAERS Safety Report 15853598 (Version 1)
Quarter: 2019Q1

REPORT INFORMATION
  Report Type: Spontaneous
  Country: CA (occurrence: CA)
  Receive Date: 20190122
  Receipt Date: 20190122
  Transmission Date: 20190417
  Serious: Yes (Other)
  Sender: FDA-Public Use
  Company Number: CA-PFIZER INC-2019026981

PATIENT
  Age: 65 Year
  Sex: Female

DRUGS (3)
  1. METHOTREXATE SODIUM. [Suspect]
     Active Substance: METHOTREXATE SODIUM
     Dosage: 2.5 MG,
     Dates: start: 201801
  2. FOLIC ACID. [Concomitant]
     Active Substance: FOLIC ACID
     Dosage: UNK
  3. PREDNISONE. [Suspect]
     Active Substance: PREDNISONE
     Dosage: UNK
     Dates: start: 2015

REACTIONS (2)
  - Crohn^s disease [Not Recovered/Not Resolved]
  - Drug ineffective [Unknown]
